FAERS Safety Report 21460623 (Version 1)
Quarter: 2022Q4

REPORT INFORMATION
  Report Type: Report from Study
  Country: US (occurrence: US)
  Receive Date: 20221015
  Receipt Date: 20221015
  Transmission Date: 20230113
  Serious: No
  Sender: FDA-Public Use
  Company Number: US-ABBVIE-4133082

PATIENT
  Sex: Female

DRUGS (2)
  1. HUMIRA [Suspect]
     Active Substance: ADALIMUMAB
     Indication: Uveitis
     Route: 058
  2. Pfizer [Concomitant]
     Indication: COVID-19 immunisation
     Dosage: ONE IN ONCE COVID VACCINE
     Route: 030

REACTIONS (1)
  - Therapeutic product effect incomplete [Unknown]
